FAERS Safety Report 9893109 (Version 1)
Quarter: 2014Q1

REPORT INFORMATION
  Report Type: Report from Study
  Country: US (occurrence: US)
  Receive Date: 20140213
  Receipt Date: 20140213
  Transmission Date: 20141002
  Serious: Yes (Death)
  Sender: FDA-Public Use
  Company Number: US-ROCHE-1327467

PATIENT
  Sex: Male

DRUGS (4)
  1. AVASTIN [Suspect]
     Indication: LUNG NEOPLASM MALIGNANT
     Route: 042
     Dates: start: 20111208
  2. KYTRIL [Suspect]
     Indication: LUNG NEOPLASM MALIGNANT
     Route: 042
  3. PEMETREXED [Concomitant]
     Route: 040
  4. ALIMTA [Concomitant]

REACTIONS (7)
  - Death [Fatal]
  - Hyperlipidaemia [Unknown]
  - Essential hypertension [Unknown]
  - Coronary artery disease [Unknown]
  - Cough [Unknown]
  - Dysphagia [Unknown]
  - Bone cancer [Unknown]
